FAERS Safety Report 12321404 (Version 4)
Quarter: 2017Q3

REPORT INFORMATION
  Report Type: Report from Study
  Country: JP (occurrence: JP)
  Receive Date: 20160502
  Receipt Date: 20170721
  Transmission Date: 20171127
  Serious: Yes (Other)
  Sender: FDA-Public Use
  Company Number: JP-HORIZON-BUP-0054-2016

PATIENT
  Age: 1 Month
  Sex: Female
  Weight: 3.1 kg

DRUGS (7)
  1. ARGI-U [Concomitant]
     Indication: CARBAMOYL PHOSPHATE SYNTHETASE DEFICIENCY
     Dosage: 750 MG/D UNTIL 28-MAY-2016, 900 MG/D 29-MAY-2016 TO 17-OCT-2016, 1200 MG/D 18-OCT-2016 TO 20-FEB-201
     Route: 048
  2. ARGININE [Concomitant]
     Active Substance: ARGININE
     Indication: CARBAMOYL PHOSPHATE SYNTHETASE DEFICIENCY
     Dosage: 500 MG DAILY AND 750 MG DAILY (TWO DOSES)
     Route: 042
     Dates: end: 20160420
  3. VICCILLIN-S [Concomitant]
     Indication: CARBAMOYL PHOSPHATE SYNTHETASE DEFICIENCY
     Route: 042
     Dates: start: 20160419
  4. BUPHENYL [Suspect]
     Active Substance: SODIUM PHENYLBUTYRATE
     Indication: CARBAMOYL PHOSPHATE SYNTHETASE DEFICIENCY
     Dosage: 200 MG DAILY
     Route: 048
     Dates: start: 20160421
  5. SODIUM BENZOATE [Concomitant]
     Active Substance: SODIUM BENZOATE
     Indication: CARBAMOYL PHOSPHATE SYNTHETASE DEFICIENCY
     Dosage: 270 MG/D, 400 MG/D 27-APR-2016 TO 07-MAY-2017, 500 MG/D 08-MAY-2017 TO 10-MAY-2017
     Route: 048
  6. L-CARTIN FF [Concomitant]
     Active Substance: LEVOCARNITINE
     Indication: CARBAMOYL PHOSPHATE SYNTHETASE DEFICIENCY
     Route: 048
     Dates: start: 20160420
  7. CLAFORAN [Concomitant]
     Active Substance: CEFOTAXIME SODIUM
     Indication: CARBAMOYL PHOSPHATE SYNTHETASE DEFICIENCY
     Route: 042
     Dates: start: 20160419

REACTIONS (1)
  - Rhabdomyolysis [Recovered/Resolved]

NARRATIVE: CASE EVENT DATE: 20160423
